FAERS Safety Report 9445966 (Version 3)
Quarter: 2014Q2

REPORT INFORMATION
  Report Type: Spontaneous
  Country: US (occurrence: US)
  Receive Date: 20130807
  Receipt Date: 20140402
  Transmission Date: 20141212
  Serious: Yes (Death, Hospitalization, Other)
  Sender: FDA-Public Use
  Company Number: US-TEVA-422969USA

PATIENT
  Sex: Male

DRUGS (11)
  1. TREANDA [Suspect]
     Indication: LYMPHOMA
     Route: 042
  2. TREANDA [Suspect]
     Route: 042
  3. TREANDA [Suspect]
     Route: 042
  4. TREANDA [Suspect]
     Route: 042
  5. ALLOPURINOL [Concomitant]
  6. AMLODIPINE [Concomitant]
  7. INSULIN [Concomitant]
  8. LISINOPRIL [Concomitant]
  9. METOPROLOL [Concomitant]
  10. SIMVASTATIN [Concomitant]
  11. WARFARIN [Concomitant]

REACTIONS (5)
  - Pneumocystis jirovecii infection [Fatal]
  - Immunosuppression [Fatal]
  - Dyspnoea [Not Recovered/Not Resolved]
  - Disseminated intravascular coagulation [Not Recovered/Not Resolved]
  - Cerebral haemorrhage [Not Recovered/Not Resolved]
